FAERS Safety Report 9902790 (Version 2)
Quarter: 2014Q2

REPORT INFORMATION
  Report Type: Spontaneous
  Country: CH (occurrence: CH)
  Receive Date: 20140217
  Receipt Date: 20140624
  Transmission Date: 20141212
  Serious: Yes (Other)
  Sender: FDA-Public Use
  Company Number: PHHY2014CH018245

PATIENT
  Sex: Female

DRUGS (1)
  1. GILENYA [Suspect]
     Dosage: UNK UKN, UNK
     Dates: start: 201301

REACTIONS (2)
  - Breast cancer [Unknown]
  - Breast mass [Unknown]
